FAERS Safety Report 14455928 (Version 1)
Quarter: 2018Q1

REPORT INFORMATION
  Report Type: Spontaneous
  Country: FR (occurrence: FR)
  Receive Date: 20180130
  Receipt Date: 20180130
  Transmission Date: 20180509
  Serious: Yes (Other)
  Sender: FDA-Public Use
  Company Number: FR-ORION CORPORATION ORION PHARMA-TREX2018-0192

PATIENT
  Age: 38 Year
  Sex: Male

DRUGS (2)
  1. PREDNISONE. [Suspect]
     Active Substance: PREDNISONE
     Route: 065
  2. METHOTREXATE. [Suspect]
     Active Substance: METHOTREXATE
     Indication: IMMUNOSUPPRESSANT DRUG THERAPY
     Route: 065

REACTIONS (7)
  - Cerebral aspergillosis [Unknown]
  - Strongyloidiasis [Unknown]
  - Meningitis enterococcal [Unknown]
  - Pneumocystis jirovecii pneumonia [Unknown]
  - Hydrocephalus [Unknown]
  - Actinomycotic pulmonary infection [Unknown]
  - Pneumonia cytomegaloviral [Recovering/Resolving]
